FAERS Safety Report 16337070 (Version 2)
Quarter: 2019Q2

REPORT INFORMATION
  Report Type: Report from Study
  Country: IE (occurrence: IE)
  Receive Date: 20190521
  Receipt Date: 20190529
  Transmission Date: 20190711
  Serious: Yes (Hospitalization)
  Sender: FDA-Public Use
  Company Number: IE-ROCHE-2322028

PATIENT
  Age: 58 Year
  Sex: Male
  Weight: 122 kg

DRUGS (11)
  1. VENTOLIN [Concomitant]
     Active Substance: ALBUTEROL SULFATE
     Route: 065
     Dates: start: 20190501, end: 20190516
  2. SYMBICORT [Concomitant]
     Active Substance: BUDESONIDE\FORMOTEROL FUMARATE DIHYDRATE
     Route: 065
     Dates: start: 20190501, end: 20190516
  3. OBINUTUZUMAB. [Suspect]
     Active Substance: OBINUTUZUMAB
     Indication: CHRONIC LYMPHOCYTIC LEUKAEMIA
     Dosage: CYCLE 1: 100 MG, D1; 900 MG, D1(2); 1000 MG, D8+15, Q28D?CYCLES 2-6: 1000 MG, D1, Q28D?LAST DOSE ON
     Route: 042
     Dates: start: 20180201, end: 20180628
  4. FLUTICASONE;VILANTEROL [Concomitant]
     Active Substance: FLUTICASONE FUROATE\VILANTEROL TRIFENATATE
     Dosage: INHALER
     Route: 065
     Dates: start: 20190522
  5. VALACYCLOVIR [Concomitant]
     Active Substance: VALACYCLOVIR HYDROCHLORIDE
     Route: 048
     Dates: start: 20190515
  6. FEBUXOSTAT. [Concomitant]
     Active Substance: FEBUXOSTAT
     Route: 048
  7. CLEXANE [Concomitant]
     Active Substance: ENOXAPARIN SODIUM
     Route: 058
     Dates: start: 20190516, end: 20190521
  8. DYMISTA [Concomitant]
     Active Substance: AZELASTINE HYDROCHLORIDE\FLUTICASONE PROPIONATE
     Route: 065
     Dates: start: 20190522
  9. COTRIMOXAZOLE [Concomitant]
     Active Substance: SULFAMETHOXAZOLE\TRIMETHOPRIM
     Route: 048
     Dates: start: 20190515
  10. NEILMED SINUS RINSE [Concomitant]
     Active Substance: SODIUM BICARBONATE\SODIUM CHLORIDE
     Route: 065
     Dates: start: 20190522
  11. VENETOCLAX. [Suspect]
     Active Substance: VENETOCLAX
     Indication: CHRONIC LYMPHOCYTIC LEUKAEMIA
     Dosage: VENETOCLAX P.O. (RAMP-UP: DOSE ESCALATION UNTIL FINAL DOSE IS REACHED)?CYCLE 1: 20 MG (2 TABL. AT 10
     Route: 048
     Dates: start: 20180222, end: 20190109

REACTIONS (2)
  - Lower respiratory tract infection [Not Recovered/Not Resolved]
  - Bronchitis chronic [Recovering/Resolving]

NARRATIVE: CASE EVENT DATE: 20190515
